FAERS Safety Report 13084252 (Version 1)
Quarter: 2017Q1

REPORT INFORMATION
  Report Type: Spontaneous
  Country: US (occurrence: US)
  Receive Date: 20170101
  Receipt Date: 20170101
  Transmission Date: 20170428
  Serious: Yes (Disabling, Other)
  Sender: FDA-Public Use
  Company Number: None

PATIENT
  Age: 52 Year
  Sex: Female
  Weight: 93.6 kg

DRUGS (12)
  1. PREMARIN [Concomitant]
     Active Substance: ESTROGENS, CONJUGATED
  2. SINGULAIR [Concomitant]
     Active Substance: MONTELUKAST SODIUM
  3. MOTRIN [Concomitant]
     Active Substance: IBUPROFEN
  4. ABILIFY [Suspect]
     Active Substance: ARIPIPRAZOLE
     Indication: DEPRESSION
     Dosage: ?          QUANTITY:90 TABLET(S);?
     Route: 048
     Dates: start: 20150101, end: 20150630
  5. LEVBID [Concomitant]
     Active Substance: HYOSCYAMINE SULFATE
  6. GABAPENTIN. [Concomitant]
     Active Substance: GABAPENTIN
  7. FLEXERIL [Concomitant]
     Active Substance: CYCLOBENZAPRINE HYDROCHLORIDE
  8. STRATTERA [Concomitant]
     Active Substance: ATOMOXETINE HYDROCHLORIDE
  9. TYLENOL ARTHRITIS PAIN [Concomitant]
     Active Substance: ACETAMINOPHEN
  10. LISINOPRIL. [Concomitant]
     Active Substance: LISINOPRIL
  11. CYMBALTA [Concomitant]
     Active Substance: DULOXETINE HYDROCHLORIDE
  12. RHINOQUART AQUA [Concomitant]

REACTIONS (1)
  - Gambling [None]

NARRATIVE: CASE EVENT DATE: 20150101
